FAERS Safety Report 5116289-X (Version None)
Quarter: 2006Q3

REPORT INFORMATION
  Report Type: 
  Country: None (occurrence: None)
  Receive Date: 20060925
  Receipt Date: 20060914
  Transmission Date: 20061208
  Serious: Yes (Death)
  Sender: FDA-Public Use
  Company Number: B0438950A

PATIENT
  Age: 43 Year
  Sex: Male

DRUGS (8)
  1. WELLBUTRIN [Suspect]
  2. PAXIL [Suspect]
  3. DIAZEPAM [Suspect]
  4. NORDAZEPAM (NORDAZEPAM) [Suspect]
  5. ZOLPIDEM TARTRATE [Suspect]
  6. VERAPAMIL [Suspect]
  7. ETHANOL (ALCOHOL) [Suspect]
  8. QUETIAPINE FUMARATE [Suspect]

REACTIONS (7)
  - CARDIOMEGALY [None]
  - COMPLETED SUICIDE [None]
  - DRUG TOXICITY [None]
  - HEPATIC STEATOSIS [None]
  - INCORRECT DOSE ADMINISTERED [None]
  - LOSS OF CONSCIOUSNESS [None]
  - PULMONARY OEDEMA [None]
